FAERS Safety Report 20693647 (Version 1)
Quarter: 2022Q2

REPORT INFORMATION
  Report Type: Report from Study
  Country: US (occurrence: US)
  Receive Date: 20220411
  Receipt Date: 20220411
  Transmission Date: 20220721
  Serious: Yes (Hospitalization)
  Sender: FDA-Public Use
  Company Number: US-TAKEDA-ALL1-2012-00618

PATIENT
  Age: 1 Year
  Sex: Male

DRUGS (1)
  1. IDURSULFASE [Suspect]
     Active Substance: IDURSULFASE
     Indication: Mucopolysaccharidosis II
     Dosage: UNK UNK, 1/WEEK
     Route: 041
     Dates: start: 20111229, end: 20120207

REACTIONS (5)
  - Neck mass [Unknown]
  - Immunoglobulins increased [Unknown]
  - Therapeutic response unexpected [Unknown]
  - Rash [Unknown]
  - Infusion related reaction [Unknown]

NARRATIVE: CASE EVENT DATE: 20120207
